FAERS Safety Report 9918049 (Version 2)
Quarter: 2014Q1

REPORT INFORMATION
  Report Type: Spontaneous
  Country: US (occurrence: US)
  Receive Date: 20140222
  Receipt Date: 20140222
  Transmission Date: 20141002
  Serious: Yes (Death, Disabling)
  Sender: FDA-Public Use
  Company Number: US-GE HEALTHCARE MEDICAL DIAGNOSTICS-OSCN-PR-0804S-0231

PATIENT
  Age: 56 Year
  Sex: Male

DRUGS (4)
  1. OMNISCAN [Suspect]
     Indication: OSTEOMYELITIS
     Dates: start: 20010515, end: 20010515
  2. OMNISCAN [Suspect]
     Indication: ALTERED STATE OF CONSCIOUSNESS
     Dates: start: 20040324, end: 20040324
  3. OMNISCAN [Suspect]
     Indication: NERVOUS SYSTEM DISORDER
  4. GADOLINIUM (UNSPECIFIED) [Suspect]
     Indication: PRODUCT USED FOR UNKNOWN INDICATION
     Dates: start: 20000807, end: 20000807

REACTIONS (1)
  - Nephrogenic systemic fibrosis [Fatal]
